FAERS Safety Report 16233425 (Version 4)
Quarter: 2024Q4

REPORT INFORMATION
  Report Type: Spontaneous
  Country: FR (occurrence: FR)
  Receive Date: 20190424
  Receipt Date: 20241016
  Transmission Date: 20250114
  Serious: Yes (Hospitalization, Other)
  Sender: SANOFI AVENTIS
  Company Number: FR-TAKEDA-2019TEU004357

PATIENT
  Age: 47 Year
  Sex: Female
  Weight: 70.2 kg

DRUGS (12)
  1. CAPLACIZUMAB [Suspect]
     Active Substance: CAPLACIZUMAB
     Indication: Thrombotic thrombocytopenic purpura
     Dosage: 10 MG, QD
     Route: 058
     Dates: start: 20190226, end: 20190507
  2. CAPLACIZUMAB [Suspect]
     Active Substance: CAPLACIZUMAB
     Indication: Thrombotic thrombocytopenic purpura
     Dosage: 10 MG, QD
     Route: 058
     Dates: start: 20190226, end: 20190507
  3. CAPLACIZUMAB [Suspect]
     Active Substance: CAPLACIZUMAB
     Indication: Thrombotic thrombocytopenic purpura
     Dosage: 10 MG, QD
     Route: 058
     Dates: start: 20190226, end: 20190507
  4. CAPLACIZUMAB [Suspect]
     Active Substance: CAPLACIZUMAB
     Indication: Thrombotic thrombocytopenic purpura
     Dosage: 10 MG, QD
     Route: 058
     Dates: start: 20190226, end: 20190507
  5. LANSOPRAZOLE [Suspect]
     Active Substance: LANSOPRAZOLE
     Indication: Prophylaxis
     Dosage: 15 MG, QD
     Route: 048
     Dates: start: 20190226
  6. LOVENOX [Suspect]
     Active Substance: ENOXAPARIN SODIUM
     Indication: Prophylaxis
     Dosage: UNK UNK, QD, 4000IU SC ON 02/28
     Route: 058
     Dates: start: 20190226, end: 20190308
  7. METHYLPREDNISOLONE [Suspect]
     Active Substance: METHYLPREDNISOLONE
     Indication: Premedication
     Dosage: 40 MILLIGRAM
     Route: 042
     Dates: start: 20190226, end: 20190314
  8. PREDNISONE [Suspect]
     Active Substance: PREDNISONE
     Indication: Thrombotic thrombocytopenic purpura
     Dosage: 35 MG, QD
     Route: 048
     Dates: start: 20190226
  9. SULFAMETHOXAZOLE\TRIMETHOPRIM [Suspect]
     Active Substance: SULFAMETHOXAZOLE\TRIMETHOPRIM
     Indication: Prophylaxis
     Dosage: UNK UNK, 1/WEEK
     Route: 048
     Dates: start: 20190306
  10. POTASSIUM CHLORIDE [Suspect]
     Active Substance: POTASSIUM CHLORIDE
     Indication: Mineral supplementation
     Dosage: UNK UNK, QD
     Route: 048
     Dates: start: 20190226
  11. RITUXIMAB [Suspect]
     Active Substance: RITUXIMAB
     Indication: Thrombotic thrombocytopenic purpura
     Dosage: 2640 MILLIGRAM
     Route: 042
     Dates: start: 20190226, end: 20190314
  12. TRUXIMA [Suspect]
     Active Substance: RITUXIMAB-ABBS
     Indication: Thrombotic thrombocytopenic purpura
     Dosage: DOSE DESCRIPTION : 2640 MILLIGRAM
     Route: 042
     Dates: start: 20190226, end: 20190314

REACTIONS (5)
  - Deep vein thrombosis [Recovered/Resolved]
  - Phlebitis [Recovered/Resolved]
  - Pain in extremity [Recovered/Resolved]
  - Heavy menstrual bleeding [Unknown]
  - Epistaxis [Unknown]

NARRATIVE: CASE EVENT DATE: 20190306
